FAERS Safety Report 6792787-8 (Version None)
Quarter: 2010Q2

REPORT INFORMATION
  Report Type: 
  Country: None (occurrence: None)
  Receive Date: 20100624
  Receipt Date: 20081009
  Transmission Date: 20101027
  Serious: Yes (Other)
  Sender: FDA-Public Use
  Company Number: US-PFIZER INC-2008081879

PATIENT
  Age: 14 Year
  Sex: Female

DRUGS (3)
  1. GEODON [Suspect]
     Route: 048
     Dates: start: 20080926
  2. THORAZINE [Concomitant]
  3. SEROQUEL [Concomitant]
     Dates: end: 20080901

REACTIONS (1)
  - CONVULSION [None]
